FAERS Safety Report 13387561 (Version 2)
Quarter: 2017Q2

REPORT INFORMATION
  Report Type: Spontaneous
  Country: US (occurrence: US)
  Receive Date: 20170330
  Receipt Date: 20170406
  Transmission Date: 20170830
  Serious: Yes (Death, Life-Threatening, Hospitalization, Other)
  Sender: FDA-Public Use
  Company Number: US-009507513-1703USA013142

PATIENT
  Age: 78 Year
  Sex: Male

DRUGS (3)
  1. KEYTRUDA [Suspect]
     Active Substance: PEMBROLIZUMAB
     Dosage: UNK
     Route: 042
     Dates: start: 20170110, end: 20170110
  2. KEYTRUDA [Suspect]
     Active Substance: PEMBROLIZUMAB
     Indication: NON-SMALL CELL LUNG CANCER
     Dosage: UNK
     Route: 042
     Dates: start: 20161219, end: 20161219
  3. KEYTRUDA [Suspect]
     Active Substance: PEMBROLIZUMAB
     Dosage: UNK
     Route: 042
     Dates: start: 20170207, end: 20170207

REACTIONS (7)
  - Lung infiltration [Fatal]
  - Pleurodesis [Unknown]
  - Pulmonary embolism [Fatal]
  - Syncope [Unknown]
  - Dyspnoea [Unknown]
  - Pleural effusion [Fatal]
  - Pneumonitis [Fatal]

NARRATIVE: CASE EVENT DATE: 2017
